FAERS Safety Report 23791870 (Version 3)
Quarter: 2025Q2

REPORT INFORMATION
  Report Type: Spontaneous
  Country: US (occurrence: US)
  Receive Date: 20240429
  Receipt Date: 20250513
  Transmission Date: 20250716
  Serious: No
  Sender: SANOFI AVENTIS
  Company Number: US-SA-SAC20240423000528

PATIENT
  Sex: Male

DRUGS (1)
  1. DUPIXENT [Suspect]
     Active Substance: DUPILUMAB
     Indication: Eosinophilic oesophagitis
     Dosage: 300 MG, QW
     Route: 058
     Dates: start: 202308, end: 2024

REACTIONS (6)
  - Weight increased [Unknown]
  - Eczema [Unknown]
  - Sensitive skin [Unknown]
  - Skin exfoliation [Unknown]
  - Arthralgia [Unknown]
  - Dry eye [Unknown]
